FAERS Safety Report 13914486 (Version 1)
Quarter: 2017Q3

REPORT INFORMATION
  Report Type: Spontaneous
  Country: US (occurrence: US)
  Receive Date: 20170828
  Receipt Date: 20170828
  Transmission Date: 20171127
  Serious: No
  Sender: FDA-Public Use
  Company Number: US-ROCHE-1140468

PATIENT
  Sex: Male
  Weight: 24.6 kg

DRUGS (1)
  1. NUTROPIN AQ [Suspect]
     Active Substance: SOMATROPIN
     Indication: GROWTH HORMONE DEFICIENCY
     Dosage: 0.3 MG/KG/WEEK
     Route: 065
     Dates: start: 199902

REACTIONS (3)
  - Growth retardation [Unknown]
  - Hypersensitivity [Unknown]
  - Nasopharyngitis [Unknown]
